FAERS Safety Report 5036244-8 (Version None)
Quarter: 2006Q2

REPORT INFORMATION
  Report Type: 
  Country: None (occurrence: None)
  Receive Date: 20060601
  Receipt Date: 20060428
  Transmission Date: 20061013
  Serious: No
  Sender: FDA-Public Use
  Company Number: US200604004783

PATIENT
  Age: 83 Year
  Sex: Female

DRUGS (11)
  1. CYMBALTA [Suspect]
     Indication: DEPRESSION
     Dosage: 30 MG, DAILY (1/D),
     Dates: start: 20060401
  2. VITAMINS [Concomitant]
  3. ASCORBIC ACID [Concomitant]
  4. CAPTOPRIL [Concomitant]
  5. METOPROLOL (METOPROLOL) [Concomitant]
  6. GLIPIZIE (GLIPIZIDE) [Concomitant]
  7. NORVASC [Concomitant]
  8. NEXIUM /UNK/(ESOMEPRAZOLE) [Concomitant]
  9. ASPIRIN [Concomitant]
  10. LIBRIUM [Concomitant]
  11. PAXIL [Concomitant]

REACTIONS (1)
  - BLOOD GLUCOSE INCREASED [None]
